FAERS Safety Report 21369009 (Version 3)
Quarter: 2023Q2

REPORT INFORMATION
  Report Type: Spontaneous
  Country: US (occurrence: US)
  Receive Date: 20220923
  Receipt Date: 20230516
  Transmission Date: 20230722
  Serious: Yes (Hospitalization, Other)
  Sender: FDA-Public Use
  Company Number: None

PATIENT
  Sex: Male

DRUGS (3)
  1. METFORMIN HYDROCHLORIDE [Suspect]
     Active Substance: METFORMIN HYDROCHLORIDE
     Indication: Product used for unknown indication
     Route: 048
     Dates: start: 20220831
  2. LISINOPRIL [Concomitant]
     Active Substance: LISINOPRIL
     Indication: Product used for unknown indication
     Route: 065
  3. CANNABIDIOL [Concomitant]
     Active Substance: CANNABIDIOL
     Indication: Product used for unknown indication
     Dosage: OIL
     Route: 065

REACTIONS (6)
  - Urinary tract infection [Unknown]
  - Eating disorder [Unknown]
  - Blood glucose abnormal [Unknown]
  - Somnolence [Unknown]
  - Illness [Unknown]
  - Vomiting [Unknown]
